FAERS Safety Report 12855453 (Version 2)
Quarter: 2016Q4

REPORT INFORMATION
  Report Type: Report from Study
  Country: US (occurrence: US)
  Receive Date: 20161017
  Receipt Date: 20161020
  Transmission Date: 20170207
  Serious: Yes (Other)
  Sender: FDA-Public Use
  Company Number: US-ACTELION-A-NJ2016-137260

PATIENT
  Age: 52 Year
  Sex: Female
  Weight: 76.64 kg

DRUGS (21)
  1. REMERON [Concomitant]
     Active Substance: MIRTAZAPINE
  2. OPSUMIT [Suspect]
     Active Substance: MACITENTAN
     Indication: PULMONARY ARTERIAL HYPERTENSION
     Dosage: 10 MG, QD
     Route: 048
     Dates: start: 20160423
  3. POTASSIUM [Concomitant]
     Active Substance: POTASSIUM
     Dosage: 20 MEQ, TID
  4. DEMADEX [Concomitant]
     Active Substance: TORSEMIDE
  5. FUROSEMIDE. [Concomitant]
     Active Substance: FUROSEMIDE
     Dosage: UNK, BID
     Dates: start: 20161006, end: 20161009
  6. UPTRAVI [Suspect]
     Active Substance: SELEXIPAG
     Indication: PULMONARY ARTERIAL HYPERTENSION
     Dosage: 200 MCG, BID
     Route: 048
     Dates: start: 20160520
  7. UPTRAVI [Suspect]
     Active Substance: SELEXIPAG
     Dosage: 1200 MCG, BID
     Route: 048
  8. ADCIRCA [Concomitant]
     Active Substance: TADALAFIL
  9. UPTRAVI [Suspect]
     Active Substance: SELEXIPAG
     Dosage: 1600 UNK, UNK
     Route: 048
  10. ATIVAN [Concomitant]
     Active Substance: LORAZEPAM
  11. VITAMIN D [Concomitant]
     Active Substance: CHOLECALCIFEROL
  12. UPTRAVI [Suspect]
     Active Substance: SELEXIPAG
     Dosage: 600 MCG,BID
     Route: 048
     Dates: start: 20160608
  13. UPTRAVI [Suspect]
     Active Substance: SELEXIPAG
     Dosage: 1000 UNK, UNK
     Route: 048
  14. COUMADIN [Concomitant]
     Active Substance: WARFARIN SODIUM
  15. METROGEL [Concomitant]
     Active Substance: METRONIDAZOLE
  16. METOLAZONE. [Concomitant]
     Active Substance: METOLAZONE
  17. UPTRAVI [Suspect]
     Active Substance: SELEXIPAG
     Dosage: 1400 MCG, BID
     Route: 048
  18. XANAX [Concomitant]
     Active Substance: ALPRAZOLAM
     Dosage: UNK
     Dates: start: 20160707
  19. ALBUTEROL. [Concomitant]
     Active Substance: ALBUTEROL
     Dosage: UNK
     Dates: start: 20160707
  20. AMBIEN [Concomitant]
     Active Substance: ZOLPIDEM TARTRATE
  21. ULTRAM [Concomitant]
     Active Substance: TRAMADOL HYDROCHLORIDE
     Dosage: UNK
     Dates: start: 20160707

REACTIONS (28)
  - Bone pain [Unknown]
  - Pain in extremity [Not Recovered/Not Resolved]
  - Fluid retention [Recovering/Resolving]
  - Malaise [Unknown]
  - Facial pain [Unknown]
  - Eye swelling [Unknown]
  - Drug titration error [Unknown]
  - Flushing [Unknown]
  - Myalgia [Unknown]
  - Weight increased [Recovering/Resolving]
  - Photosensitivity reaction [Unknown]
  - Stress [Unknown]
  - Pain in jaw [Unknown]
  - Disease progression [Not Recovered/Not Resolved]
  - Renal failure [Not Recovered/Not Resolved]
  - Glomerular filtration rate decreased [Not Recovered/Not Resolved]
  - Blood potassium decreased [Recovered/Resolved]
  - Headache [Recovered/Resolved]
  - Neck pain [Unknown]
  - Pulmonary arterial hypertension [Not Recovered/Not Resolved]
  - Dyspnoea [Recovering/Resolving]
  - Nausea [Unknown]
  - Right ventricular failure [Not Recovered/Not Resolved]
  - Oxygen saturation decreased [Recovering/Resolving]
  - Ocular discomfort [Unknown]
  - Protein total increased [Not Recovered/Not Resolved]
  - Pain [Recovered/Resolved]
  - Abdominal distension [Recovering/Resolving]

NARRATIVE: CASE EVENT DATE: 20160607
